FAERS Safety Report 9752355 (Version 2)
Quarter: 2013Q4

REPORT INFORMATION
  Report Type: Spontaneous
  Country: US (occurrence: US)
  Receive Date: 20131213
  Receipt Date: 20131226
  Transmission Date: 20140711
  Serious: No
  Sender: FDA-Public Use
  Company Number: US-PFIZER INC-2013354400

PATIENT
  Sex: Female

DRUGS (2)
  1. METHOTREXATE SODIUM [Suspect]
     Dosage: UNK
  2. ARAVA [Suspect]
     Dosage: UNK

REACTIONS (2)
  - Respiratory disorder [Unknown]
  - Chronic obstructive pulmonary disease [Unknown]
